FAERS Safety Report 11706267 (Version 1)
Quarter: 2015Q4

REPORT INFORMATION
  Report Type: Report from Study
  Country: AU (occurrence: AU)
  Receive Date: 20151106
  Receipt Date: 20151106
  Transmission Date: 20160304
  Serious: Yes (Other)
  Sender: FDA-Public Use
  Company Number: AU-REGENERON PHARMACEUTICALS, INC.-2015-13511

PATIENT

DRUGS (1)
  1. EYLEA [Suspect]
     Active Substance: AFLIBERCEPT
     Indication: NEOVASCULAR AGE-RELATED MACULAR DEGENERATION
     Dosage: DURATION OF USE: APPROX. 10 INJECTIONS RIGHT EYE
     Route: 031
     Dates: start: 201212

REACTIONS (3)
  - Cataract [Unknown]
  - Chest injury [Recovered/Resolved]
  - Fall [Recovered/Resolved]
